FAERS Safety Report 15770060 (Version 2)
Quarter: 2019Q4

REPORT INFORMATION
  Report Type: Spontaneous
  Country: CA (occurrence: CA)
  Receive Date: 20181228
  Receipt Date: 20191030
  Transmission Date: 20200122
  Serious: Yes (Other)
  Sender: FDA-Public Use
  Company Number: CA-TEVA-2018-CA-991868

PATIENT
  Age: 47 Year
  Sex: Male

DRUGS (13)
  1. CICLOSPORIN [Suspect]
     Active Substance: CYCLOSPORINE
     Indication: PRODUCT USED FOR UNKNOWN INDICATION
     Route: 065
  2. XOLAIR [Suspect]
     Active Substance: OMALIZUMAB
     Indication: CHRONIC SPONTANEOUS URTICARIA
     Route: 058
  3. PREDNISONE. [Concomitant]
     Active Substance: PREDNISONE
     Indication: CHRONIC SPONTANEOUS URTICARIA
     Route: 048
  4. REACTINE [CETIRIZINE HYDROCHLORIDE] [Concomitant]
     Active Substance: CETIRIZINE HYDROCHLORIDE
     Indication: CHRONIC SPONTANEOUS URTICARIA
     Dosage: 1 DOSAGE FORMS DAILY;
     Route: 048
  5. AERIUS [Concomitant]
     Indication: CHRONIC SPONTANEOUS URTICARIA
     Dosage: 4 DOSAGE FORMS DAILY;
     Route: 048
  6. XOLAIR [Suspect]
     Active Substance: OMALIZUMAB
     Route: 058
  7. MONTELUKAST SODIUM. [Suspect]
     Active Substance: MONTELUKAST SODIUM
     Indication: PRODUCT USED FOR UNKNOWN INDICATION
     Dosage: 1 DOSAGE FORMS DAILY;
     Route: 048
  8. XOLAIR [Suspect]
     Active Substance: OMALIZUMAB
     Route: 058
  9. XOLAIR [Suspect]
     Active Substance: OMALIZUMAB
     Route: 058
  10. BENADRYL [Concomitant]
     Active Substance: DIPHENHYDRAMINE HYDROCHLORIDE
     Indication: CHRONIC SPONTANEOUS URTICARIA
     Dosage: 8 DOSAGE FORMS DAILY;
     Route: 048
  11. XOLAIR [Suspect]
     Active Substance: OMALIZUMAB
     Route: 058
  12. XOLAIR [Suspect]
     Active Substance: OMALIZUMAB
     Route: 058
  13. CLARITIN [Concomitant]
     Active Substance: LORATADINE
     Indication: CHRONIC SPONTANEOUS URTICARIA
     Dosage: 2 DOSAGE FORMS DAILY;
     Route: 048

REACTIONS (17)
  - Feeling abnormal [Not Recovered/Not Resolved]
  - Swelling [Not Recovered/Not Resolved]
  - Erythema [Not Recovered/Not Resolved]
  - Immune system disorder [Not Recovered/Not Resolved]
  - Blood pressure increased [Not Recovered/Not Resolved]
  - Nasal congestion [Not Recovered/Not Resolved]
  - Off label use [Not Recovered/Not Resolved]
  - Blister [Not Recovered/Not Resolved]
  - Heart rate increased [Not Recovered/Not Resolved]
  - Oropharyngeal pain [Not Recovered/Not Resolved]
  - Therapeutic response decreased [Not Recovered/Not Resolved]
  - Urticaria [Not Recovered/Not Resolved]
  - Blood potassium increased [Not Recovered/Not Resolved]
  - Cardiac disorder [Not Recovered/Not Resolved]
  - Pruritus [Not Recovered/Not Resolved]
  - Skin plaque [Not Recovered/Not Resolved]
  - Insomnia [Not Recovered/Not Resolved]
